FAERS Safety Report 5874624-9 (Version None)
Quarter: 2008Q3

REPORT INFORMATION
  Report Type: 
  Country: None (occurrence: None)
  Receive Date: 20080902
  Receipt Date: 20080820
  Transmission Date: 20090109
  Serious: Yes (Hospitalization, Other)
  Sender: FDA-Public Use
  Company Number: 2008US000979

PATIENT
  Age: 45 Year
  Sex: Male

DRUGS (5)
  1. AMBISOME [Suspect]
     Indication: BRONCHOPULMONARY ASPERGILLOSIS
     Dosage: 200 MG, UID/QD, IV NOS
     Route: 042
     Dates: start: 20080212, end: 20080311
  2. RIFAMPICIN [Concomitant]
  3. ITRAZOL (ITRACONAZOLE) [Concomitant]
  4. CODEINE PHOSPHATE [Concomitant]
  5. MUCODYNE (CARBOCISTEINE) [Concomitant]

REACTIONS (3)
  - HYPOKALAEMIA [None]
  - LIVER DISORDER [None]
  - RHABDOMYOLYSIS [None]
